FAERS Safety Report 24413150 (Version 2)
Quarter: 2024Q4

REPORT INFORMATION
  Report Type: Spontaneous
  Country: US (occurrence: US)
  Receive Date: 20241008
  Receipt Date: 20241107
  Transmission Date: 20250115
  Serious: Yes (Other)
  Sender: APELLIS PHARMACEUTICALS
  Company Number: US-APELLIS PHARMACEUTICALS-APL-2023-002834

PATIENT
  Weight: 67.5 kg

DRUGS (2)
  1. SYFOVRE [Suspect]
     Active Substance: PEGCETACOPLAN
     Indication: Dry age-related macular degeneration
     Dosage: 0.1 MILLILITER OS
     Route: 031
     Dates: start: 20230524, end: 20230524
  2. SYFOVRE [Suspect]
     Active Substance: PEGCETACOPLAN
     Indication: Dry age-related macular degeneration
     Dosage: 0.1 MILLILITER OD
     Route: 031
     Dates: start: 20230524, end: 20230524

REACTIONS (8)
  - Iridocyclitis [Recovering/Resolving]
  - Iridocyclitis [Recovering/Resolving]
  - Visual impairment [Recovering/Resolving]
  - Visual impairment [Recovering/Resolving]
  - Vitreous floaters [Recovered/Resolved]
  - Vitreous floaters [Recovered/Resolved]
  - Vision blurred [Recovered/Resolved]
  - Uveitis [Recovered/Resolved]

NARRATIVE: CASE EVENT DATE: 20230624
